FAERS Safety Report 21467285 (Version 5)
Quarter: 2022Q4

REPORT INFORMATION
  Report Type: Spontaneous
  Country: US (occurrence: US)
  Receive Date: 20221017
  Receipt Date: 20221223
  Transmission Date: 20230112
  Serious: No
  Sender: FDA-Public Use
  Company Number: US-BAYER-2022A141780

PATIENT
  Age: 77 Year
  Sex: Male

DRUGS (6)
  1. KERENDIA [Suspect]
     Active Substance: FINERENONE
     Indication: Glomerular filtration rate decreased
     Dosage: 10 MG
     Dates: start: 20220720
  2. KERENDIA [Suspect]
     Active Substance: FINERENONE
     Indication: Renal impairment
  3. KERENDIA [Suspect]
     Active Substance: FINERENONE
     Indication: Glucose tolerance impaired
  4. METFORMIN [Concomitant]
     Active Substance: METFORMIN HYDROCHLORIDE
     Indication: Glucose tolerance impaired
     Dosage: 500 MG
  5. KOMBIGLYZE XR [Concomitant]
     Active Substance: METFORMIN HYDROCHLORIDE\SAXAGLIPTIN HYDROCHLORIDE
     Dosage: 5/1000MG ONCE IN THE MORNING
  6. JARDIANCE [Concomitant]
     Active Substance: EMPAGLIFLOZIN
     Dosage: 10 MG, QD, IN THE EVENING

REACTIONS (1)
  - Off label use [None]
